FAERS Safety Report 9872077 (Version 3)
Quarter: 2015Q1

REPORT INFORMATION
  Report Type: Spontaneous
  Country: US (occurrence: US)
  Receive Date: 20140205
  Receipt Date: 20150222
  Transmission Date: 20150721
  Serious: No
  Sender: FDA-Public Use
  Company Number: US-ALLERGAN-1307089US

PATIENT
  Age: 55 Year
  Sex: Female

DRUGS (6)
  1. JUVEDERM [Suspect]
     Active Substance: HYALURONIC ACID
     Indication: PRODUCT USED FOR UNKNOWN INDICATION
     Dosage: UNK
     Dates: start: 201211, end: 201211
  2. VITAMIN B12 [Concomitant]
     Active Substance: CYANOCOBALAMIN
     Indication: NUTRITIONAL SUPPLEMENTATION
     Dosage: UNK
  3. BOTOX COSMETIC [Suspect]
     Active Substance: ONABOTULINUMTOXINA
     Indication: SKIN WRINKLING
  4. BOTOX COSMETIC [Suspect]
     Active Substance: ONABOTULINUMTOXINA
     Indication: SKIN WRINKLING
     Dosage: 30 UNITS, SINGLE
     Route: 030
     Dates: start: 20120916, end: 20120916
  5. VITAMIN D                          /00107901/ [Concomitant]
     Active Substance: ERGOCALCIFEROL
     Indication: NUTRITIONAL SUPPLEMENTATION
     Dosage: UNK
  6. ARMOUR THYROID [Concomitant]
     Active Substance: THYROID, PORCINE\THYROID, UNSPECIFIED
     Indication: HYPOTHYROIDISM
     Dosage: UNK

REACTIONS (67)
  - Asthenia [Recovered/Resolved]
  - Nasal congestion [Recovered/Resolved]
  - Nightmare [Unknown]
  - Asthenia [Unknown]
  - Depression [Unknown]
  - Multiple allergies [Unknown]
  - Pain of skin [Unknown]
  - Hyperacusis [Unknown]
  - Ear discomfort [Not Recovered/Not Resolved]
  - Neck pain [Not Recovered/Not Resolved]
  - Speech disorder [Recovering/Resolving]
  - Vitreous floaters [Unknown]
  - Amnesia [Unknown]
  - Post-traumatic stress disorder [Unknown]
  - Sinus congestion [Recovered/Resolved]
  - Dizziness [Not Recovered/Not Resolved]
  - Burning sensation [Unknown]
  - Abdominal distension [Unknown]
  - Malaise [Recovered/Resolved]
  - Headache [Recovered/Resolved]
  - Dyspnoea [Unknown]
  - Tinnitus [Unknown]
  - Fatigue [Unknown]
  - Anxiety [Not Recovered/Not Resolved]
  - Photosensitivity reaction [Not Recovered/Not Resolved]
  - Chest pain [Recovering/Resolving]
  - Loss of consciousness [Recovered/Resolved]
  - Vision blurred [Not Recovered/Not Resolved]
  - Head discomfort [Unknown]
  - Hypoaesthesia [Unknown]
  - Hypoaesthesia [Unknown]
  - Dyspnoea [Unknown]
  - Sensory disturbance [Recovering/Resolving]
  - Burning sensation [Not Recovered/Not Resolved]
  - Anxiety [Unknown]
  - Feeling abnormal [Unknown]
  - Muscle tightness [Unknown]
  - Visual acuity reduced [Unknown]
  - Discomfort [Unknown]
  - Memory impairment [Unknown]
  - Drug hypersensitivity [Recovering/Resolving]
  - Dyspnoea [Recovered/Resolved]
  - Dry mouth [Unknown]
  - Muscular weakness [Unknown]
  - Dysarthria [Unknown]
  - Sinusitis [Recovered/Resolved]
  - Eye swelling [Unknown]
  - Tension headache [Unknown]
  - Dizziness [Unknown]
  - Photosensitivity reaction [Unknown]
  - Stress [Not Recovered/Not Resolved]
  - Muscle tightness [Not Recovered/Not Resolved]
  - Nightmare [Recovered/Resolved]
  - Migraine [Unknown]
  - Dry eye [Not Recovered/Not Resolved]
  - Paranasal sinus discomfort [Unknown]
  - Loss of consciousness [Unknown]
  - Insomnia [Unknown]
  - Headache [Unknown]
  - Nausea [Recovering/Resolving]
  - Muscular weakness [Unknown]
  - Foreign body sensation in eyes [Unknown]
  - Dehydration [Unknown]
  - Anaemia [Unknown]
  - Ear discomfort [Unknown]
  - Sinus headache [Unknown]
  - Fatigue [Recovering/Resolving]

NARRATIVE: CASE EVENT DATE: 20120819
